FAERS Safety Report 25469393 (Version 2)
Quarter: 2025Q3

REPORT INFORMATION
  Report Type: Report from Study
  Country: EU (occurrence: EU)
  Receive Date: 20250623
  Receipt Date: 20250722
  Transmission Date: 20251021
  Serious: Yes (Hospitalization, Other)
  Sender: MYLAN
  Company Number: None

PATIENT
  Age: 54 Year
  Sex: Male

DRUGS (64)
  1. MIRTAZAPINE [Suspect]
     Active Substance: MIRTAZAPINE
     Indication: Product used for unknown indication
  2. MIRTAZAPINE [Suspect]
     Active Substance: MIRTAZAPINE
     Route: 048
  3. MIRTAZAPINE [Suspect]
     Active Substance: MIRTAZAPINE
     Route: 048
  4. MIRTAZAPINE [Suspect]
     Active Substance: MIRTAZAPINE
  5. QUETIAPINE [Suspect]
     Active Substance: QUETIAPINE
     Indication: Product used for unknown indication
  6. QUETIAPINE [Suspect]
     Active Substance: QUETIAPINE
     Route: 065
  7. QUETIAPINE [Suspect]
     Active Substance: QUETIAPINE
     Route: 065
  8. QUETIAPINE [Suspect]
     Active Substance: QUETIAPINE
  9. TICAGRELOR [Suspect]
     Active Substance: TICAGRELOR
     Indication: Product used for unknown indication
  10. TICAGRELOR [Suspect]
     Active Substance: TICAGRELOR
     Route: 048
  11. TICAGRELOR [Suspect]
     Active Substance: TICAGRELOR
     Route: 048
  12. TICAGRELOR [Suspect]
     Active Substance: TICAGRELOR
  13. CLORAZEPATE DIPOTASSIUM [Suspect]
     Active Substance: CLORAZEPATE DIPOTASSIUM
     Indication: Product used for unknown indication
  14. CLORAZEPATE DIPOTASSIUM [Suspect]
     Active Substance: CLORAZEPATE DIPOTASSIUM
     Route: 048
  15. CLORAZEPATE DIPOTASSIUM [Suspect]
     Active Substance: CLORAZEPATE DIPOTASSIUM
     Route: 048
  16. CLORAZEPATE DIPOTASSIUM [Suspect]
     Active Substance: CLORAZEPATE DIPOTASSIUM
  17. SACUBITRIL\VALSARTAN [Concomitant]
     Active Substance: SACUBITRIL\VALSARTAN
  18. SACUBITRIL\VALSARTAN [Concomitant]
     Active Substance: SACUBITRIL\VALSARTAN
     Route: 048
  19. SACUBITRIL\VALSARTAN [Concomitant]
     Active Substance: SACUBITRIL\VALSARTAN
     Route: 048
  20. SACUBITRIL\VALSARTAN [Concomitant]
     Active Substance: SACUBITRIL\VALSARTAN
  21. LEVETIRACETAM [Concomitant]
     Active Substance: LEVETIRACETAM
  22. LEVETIRACETAM [Concomitant]
     Active Substance: LEVETIRACETAM
     Route: 048
  23. LEVETIRACETAM [Concomitant]
     Active Substance: LEVETIRACETAM
     Route: 048
  24. LEVETIRACETAM [Concomitant]
     Active Substance: LEVETIRACETAM
  25. BIPERIDEN [Concomitant]
     Active Substance: BIPERIDEN
  26. BIPERIDEN [Concomitant]
     Active Substance: BIPERIDEN
     Route: 048
  27. BIPERIDEN [Concomitant]
     Active Substance: BIPERIDEN
     Route: 048
  28. BIPERIDEN [Concomitant]
     Active Substance: BIPERIDEN
  29. NITROGLYCERIN [Concomitant]
     Active Substance: NITROGLYCERIN
  30. NITROGLYCERIN [Concomitant]
     Active Substance: NITROGLYCERIN
     Route: 062
  31. NITROGLYCERIN [Concomitant]
     Active Substance: NITROGLYCERIN
     Route: 062
  32. NITROGLYCERIN [Concomitant]
     Active Substance: NITROGLYCERIN
  33. BISOPROLOL [Concomitant]
     Active Substance: BISOPROLOL
  34. BISOPROLOL [Concomitant]
     Active Substance: BISOPROLOL
     Route: 048
  35. BISOPROLOL [Concomitant]
     Active Substance: BISOPROLOL
     Route: 048
  36. BISOPROLOL [Concomitant]
     Active Substance: BISOPROLOL
  37. VALSARTAN [Concomitant]
     Active Substance: VALSARTAN
  38. VALSARTAN [Concomitant]
     Active Substance: VALSARTAN
     Route: 065
  39. VALSARTAN [Concomitant]
     Active Substance: VALSARTAN
     Route: 065
  40. VALSARTAN [Concomitant]
     Active Substance: VALSARTAN
  41. OMEPRAZOLE [Concomitant]
     Active Substance: OMEPRAZOLE
  42. OMEPRAZOLE [Concomitant]
     Active Substance: OMEPRAZOLE
     Route: 065
  43. OMEPRAZOLE [Concomitant]
     Active Substance: OMEPRAZOLE
     Route: 065
  44. OMEPRAZOLE [Concomitant]
     Active Substance: OMEPRAZOLE
  45. FUROSEMIDE [Concomitant]
     Active Substance: FUROSEMIDE
  46. FUROSEMIDE [Concomitant]
     Active Substance: FUROSEMIDE
     Route: 065
  47. FUROSEMIDE [Concomitant]
     Active Substance: FUROSEMIDE
     Route: 065
  48. FUROSEMIDE [Concomitant]
     Active Substance: FUROSEMIDE
  49. EMPAGLIFLOZIN [Concomitant]
     Active Substance: EMPAGLIFLOZIN
  50. EMPAGLIFLOZIN [Concomitant]
     Active Substance: EMPAGLIFLOZIN
     Route: 065
  51. EMPAGLIFLOZIN [Concomitant]
     Active Substance: EMPAGLIFLOZIN
     Route: 065
  52. EMPAGLIFLOZIN [Concomitant]
     Active Substance: EMPAGLIFLOZIN
  53. ATORVASTATIN [Concomitant]
     Active Substance: ATORVASTATIN
  54. ATORVASTATIN [Concomitant]
     Active Substance: ATORVASTATIN
     Route: 065
  55. ATORVASTATIN [Concomitant]
     Active Substance: ATORVASTATIN
     Route: 065
  56. ATORVASTATIN [Concomitant]
     Active Substance: ATORVASTATIN
  57. EZETIMIBE [Concomitant]
     Active Substance: EZETIMIBE
  58. EZETIMIBE [Concomitant]
     Active Substance: EZETIMIBE
     Route: 065
  59. EZETIMIBE [Concomitant]
     Active Substance: EZETIMIBE
     Route: 065
  60. EZETIMIBE [Concomitant]
     Active Substance: EZETIMIBE
  61. ASPIRIN [Concomitant]
     Active Substance: ASPIRIN
  62. ASPIRIN [Concomitant]
     Active Substance: ASPIRIN
     Route: 065
  63. ASPIRIN [Concomitant]
     Active Substance: ASPIRIN
     Route: 065
  64. ASPIRIN [Concomitant]
     Active Substance: ASPIRIN

REACTIONS (2)
  - Anaemia [Recovered/Resolved]
  - Ileus paralytic [Recovered/Resolved]

NARRATIVE: CASE EVENT DATE: 20250208
